FAERS Safety Report 8206605-4 (Version None)
Quarter: 2012Q1

REPORT INFORMATION
  Report Type: 
  Country: None (occurrence: None)
  Receive Date: 20120313
  Receipt Date: 20120301
  Transmission Date: 20120608
  Serious: Yes (Other)
  Sender: FDA-Public Use
  Company Number: TR-VALEANT-2012VX001079

PATIENT

DRUGS (6)
  1. LEUCOVORIN CALCIUM [Suspect]
     Indication: COLON CANCER STAGE III
     Dosage: DOSE UNIT:60
     Route: 040
  2. FLUOROURACIL [Suspect]
     Indication: COLON CANCER STAGE III
     Dosage: DOSE UNIT:500
     Route: 040
  3. OXALIPLATIN [Suspect]
     Indication: COLON CANCER STAGE III
     Dosage: DOSE UNIT:85
     Route: 065
  4. SODIUM CHLORIDE [Concomitant]
     Route: 065
  5. CALCIUM GLUCONATE [Concomitant]
     Route: 065
  6. MAGNESIUM SULFATE [Concomitant]
     Route: 065

REACTIONS (1)
  - RENAL IMPAIRMENT [None]
